FAERS Safety Report 9685072 (Version 3)
Quarter: 2014Q1

REPORT INFORMATION
  Report Type: Spontaneous
  Country: BE (occurrence: BE)
  Receive Date: 20131113
  Receipt Date: 20140313
  Transmission Date: 20141002
  Serious: Yes (Hospitalization)
  Sender: FDA-Public Use
  Company Number: BE-AMGEN-BELSP2013079243

PATIENT
  Age: 46 Year
  Sex: Female

DRUGS (5)
  1. ENBREL [Suspect]
     Indication: ANKYLOSING SPONDYLITIS
     Dosage: 50 MG, WEEKLY
     Route: 058
     Dates: start: 201306, end: 20131024
  2. PARACETAMOL [Concomitant]
     Dosage: 3 MG, UNK
     Route: 048
     Dates: start: 201111
  3. OMEPRAZOLE [Concomitant]
     Dosage: 20 MG, UNK
  4. COLCHICINE [Concomitant]
     Dosage: 0.5 MG, UNK
     Dates: start: 201111
  5. TOVIAZ [Concomitant]
     Dosage: UNK
     Route: 048

REACTIONS (6)
  - Pelvic pain [Unknown]
  - Dyspnoea [Unknown]
  - Road traffic accident [Unknown]
  - White matter lesion [Unknown]
  - Spinal fracture [Unknown]
  - Drug ineffective [Unknown]
